FAERS Safety Report 5520754-0 (Version None)
Quarter: 2007Q4

REPORT INFORMATION
  Report Type: 
  Country: None (occurrence: None)
  Receive Date: 20071119
  Receipt Date: 20071106
  Transmission Date: 20080405
  Serious: Yes (Other)
  Sender: FDA-Public Use
  Company Number: US-PFIZER INC-2007095479

PATIENT
  Sex: Female
  Weight: 52 kg

DRUGS (7)
  1. CHANTIX [Suspect]
     Indication: SMOKING CESSATION THERAPY
  2. PREDNISONE TAB [Concomitant]
  3. AMLODIPINE [Concomitant]
  4. VALSARTAN [Concomitant]
  5. REQUIP [Concomitant]
  6. LEXAPRO [Concomitant]
  7. LIPITOR [Concomitant]

REACTIONS (2)
  - FLATULENCE [None]
  - IRRITABLE BOWEL SYNDROME [None]
